FAERS Safety Report 15271465 (Version 1)
Quarter: 2018Q3

REPORT INFORMATION
  Report Type: Spontaneous
  Country: CA (occurrence: CA)
  Receive Date: 20180813
  Receipt Date: 20180813
  Transmission Date: 20181010
  Serious: Yes (Other)
  Sender: FDA-Public Use
  Company Number: CA-BEH-2018093610

PATIENT
  Age: 39 Year
  Sex: Female
  Weight: 68 kg

DRUGS (5)
  1. ALBUREX [Suspect]
     Active Substance: ALBUMIN HUMAN
     Indication: PLASMAPHERESIS
     Dosage: 2250 ML, TOT
     Route: 042
     Dates: start: 20180805, end: 20180805
  2. ALBUREX [Suspect]
     Active Substance: ALBUMIN HUMAN
     Dosage: UNK
     Route: 042
  3. ALBUREX [Suspect]
     Active Substance: ALBUMIN HUMAN
     Dosage: 2000 ML, TOT
     Route: 042
     Dates: start: 20180807, end: 20180807
  4. ALBUREX [Suspect]
     Active Substance: ALBUMIN HUMAN
     Dosage: UNK
     Route: 042
  5. ALBUREX [Suspect]
     Active Substance: ALBUMIN HUMAN
     Dosage: UNK
     Route: 042

REACTIONS (2)
  - Urticaria [Recovered/Resolved]
  - Urticaria [Recovered/Resolved]

NARRATIVE: CASE EVENT DATE: 20180805
